FAERS Safety Report 8509800-X (Version None)
Quarter: 2012Q3

REPORT INFORMATION
  Report Type: 
  Country: None (occurrence: None)
  Receive Date: 20120713
  Receipt Date: 20120702
  Transmission Date: 20120928
  Serious: Yes (Other)
  Sender: FDA-Public Use
  Company Number: US-MYLANLABS-2012S1007424

PATIENT
  Age: 19 Year
  Sex: Female
  Weight: 54.43 kg

DRUGS (6)
  1. ALLEGRA [Concomitant]
  2. ALBUTEROL [Concomitant]
  3. SINGULAIR [Concomitant]
  4. SYMBICORT [Concomitant]
  5. AMNESTEEM [Suspect]
     Dosage: 80MG QD ON WED, SUN
     Route: 048
     Dates: start: 20120227, end: 20120329
  6. AMNESTEEM [Suspect]
     Indication: ACNE
     Dosage: 40MG M, T, TH, FRI, SAT
     Route: 048
     Dates: start: 20120227, end: 20120329

REACTIONS (4)
  - LYMPHADENOPATHY [None]
  - RECTAL HAEMORRHAGE [None]
  - SLEEP DISORDER [None]
  - MIGRAINE [None]
